FAERS Safety Report 20415062 (Version 2)
Quarter: 2022Q1

REPORT INFORMATION
  Report Type: Report from Study
  Country: US (occurrence: None)
  Receive Date: 20220202
  Receipt Date: 20220304
  Transmission Date: 20220423
  Serious: Yes (Other)
  Sender: FDA-Public Use
  Company Number: US-Merck Healthcare KGaA-9268036

PATIENT
  Age: 58 Year
  Sex: Female

DRUGS (7)
  1. REBIF [Suspect]
     Active Substance: INTERFERON BETA-1A
     Indication: Multiple sclerosis
     Route: 058
     Dates: start: 20050523, end: 20110209
  2. REBIF [Suspect]
     Active Substance: INTERFERON BETA-1A
     Route: 058
     Dates: start: 20120316, end: 20150320
  3. REBIF [Suspect]
     Active Substance: INTERFERON BETA-1A
     Route: 058
     Dates: start: 20180312, end: 20210713
  4. REBIF [Suspect]
     Active Substance: INTERFERON BETA-1A
     Route: 058
     Dates: start: 20211201
  5. REBIF [Suspect]
     Active Substance: INTERFERON BETA-1A
     Dosage: PRE-FILLED SYRINGE?PREVIOUSLY: REBIJECT II/MANUAL
     Route: 058
     Dates: start: 202112
  6. COVID-19 VACCINE [Concomitant]
     Indication: COVID-19 immunisation
     Dosage: FIRST DOSE
  7. COVID-19 VACCINE [Concomitant]
     Dosage: SECOND DOSE

REACTIONS (22)
  - Autonomic nervous system imbalance [Recovering/Resolving]
  - Type 2 diabetes mellitus [Unknown]
  - COVID-19 [Recovering/Resolving]
  - Post-acute COVID-19 syndrome [Unknown]
  - Periarthritis [Unknown]
  - Impaired work ability [Unknown]
  - Anxiety [Not Recovered/Not Resolved]
  - Malaise [Unknown]
  - Restlessness [Unknown]
  - Suspected COVID-19 [Unknown]
  - Dyspnoea [Unknown]
  - Cough [Unknown]
  - Pain [Unknown]
  - Respiratory tract congestion [Unknown]
  - Illness [Unknown]
  - Fall [Recovering/Resolving]
  - Pyrexia [Unknown]
  - Fatigue [Unknown]
  - Exposure to SARS-CoV-2 [Unknown]
  - Treatment noncompliance [Unknown]
  - Adverse drug reaction [Unknown]
  - Product administration interrupted [Unknown]

NARRATIVE: CASE EVENT DATE: 20210101
